FAERS Safety Report 23232640 (Version 2)
Quarter: 2023Q4

REPORT INFORMATION
  Report Type: Spontaneous
  Country: RU (occurrence: RU)
  Receive Date: 20231128
  Receipt Date: 20231212
  Transmission Date: 20240110
  Serious: Yes (Other)
  Sender: FDA-Public Use
  Company Number: RU-SANDOZ-SDZ2023RU052159

PATIENT
  Sex: Female

DRUGS (3)
  1. FLUOROURACIL [Suspect]
     Active Substance: FLUOROURACIL
     Indication: Breast cancer
     Route: 065
  2. METHOTREXATE [Suspect]
     Active Substance: METHOTREXATE
     Indication: Breast cancer
     Route: 065
  3. PACLITAXEL [Suspect]
     Active Substance: PACLITAXEL
     Indication: Breast cancer
     Dosage: UNK
     Route: 065

REACTIONS (2)
  - Breast cancer [Unknown]
  - Disease progression [Unknown]
